FAERS Safety Report 12897023 (Version 2)
Quarter: 2016Q4

REPORT INFORMATION
  Report Type: Spontaneous
  Country: US (occurrence: US)
  Receive Date: 20161031
  Receipt Date: 20161101
  Transmission Date: 20170207
  Serious: No
  Sender: FDA-Public Use
  Company Number: US-PFIZER INC-2016503784

PATIENT
  Age: 62 Year
  Sex: Female
  Weight: 57 kg

DRUGS (1)
  1. ESTRING [Suspect]
     Active Substance: ESTRADIOL
     Indication: ATROPHIC VULVOVAGINITIS
     Dosage: 2 MG, EVERY 3 MONTHS (FOR 90 DAYS)
     Route: 067
     Dates: start: 201606

REACTIONS (1)
  - Vulvovaginal mycotic infection [Not Recovered/Not Resolved]

NARRATIVE: CASE EVENT DATE: 20161027
